FAERS Safety Report 7991722-4 (Version None)
Quarter: 2011Q4

REPORT INFORMATION
  Report Type: 
  Country: None (occurrence: None)
  Receive Date: 20111219
  Receipt Date: 20111209
  Transmission Date: 20120403
  Serious: Yes (Hospitalization, Other)
  Sender: FDA-Public Use
  Company Number: HR-ABBOTT-11P-216-0882207-00

PATIENT
  Age: 74 Year
  Sex: Male

DRUGS (1)
  1. LUPRON DEPOT [Suspect]
     Indication: PROSTATE CANCER METASTATIC
     Route: 058
     Dates: start: 20110801

REACTIONS (5)
  - ESCHERICHIA INFECTION [None]
  - PYREXIA [None]
  - INJECTION SITE ABSCESS STERILE [None]
  - SKIN NECROSIS [None]
  - NEUTROPENIA [None]
